FAERS Safety Report 5416733-4 (Version None)
Quarter: 2007Q3

REPORT INFORMATION
  Report Type: 
  Country: None (occurrence: None)
  Receive Date: 20070816
  Receipt Date: 20070809
  Transmission Date: 20080115
  Serious: Yes (Hospitalization)
  Sender: FDA-Public Use
  Company Number: B0482648A

PATIENT
  Age: 86 Year
  Sex: Female

DRUGS (5)
  1. PAXIL [Suspect]
     Indication: DEPRESSION
     Dosage: 10MG PER DAY
     Route: 048
     Dates: start: 20070724, end: 20070729
  2. PREDONINE [Concomitant]
  3. TANNALBIN [Concomitant]
     Route: 048
  4. LAC B [Concomitant]
     Route: 048
  5. FUROSEMIDE [Concomitant]

REACTIONS (1)
  - HAEMORRHAGE SUBCUTANEOUS [None]
